FAERS Safety Report 22285386 (Version 2)
Quarter: 2023Q2

REPORT INFORMATION
  Report Type: Report from Study
  Country: BR (occurrence: BR)
  Receive Date: 20230504
  Receipt Date: 20230519
  Transmission Date: 20230721
  Serious: Yes (Hospitalization)
  Sender: FDA-Public Use
  Company Number: BR-ISA-BR-ISA-000323

PATIENT
  Age: 50 Year
  Sex: Female

DRUGS (4)
  1. CEMIPLIMAB [Suspect]
     Active Substance: CEMIPLIMAB
     Indication: Product used for unknown indication
     Dosage: 350 UNK
     Route: 042
  2. INVESTIGATIONAL PRODUCT [Suspect]
     Active Substance: INVESTIGATIONAL PRODUCT
     Indication: Product used for unknown indication
     Dosage: 150 UNK
     Route: 058
  3. PREGABALIN [Concomitant]
     Active Substance: PREGABALIN
     Indication: Herpes zoster
     Route: 065
  4. VALACYCLOVIR [Concomitant]
     Active Substance: VALACYCLOVIR HYDROCHLORIDE
     Indication: Herpes zoster
     Route: 065

REACTIONS (2)
  - Neck pain [Recovered/Resolved]
  - Herpes zoster [Recovered/Resolved]

NARRATIVE: CASE EVENT DATE: 20230424
